FAERS Safety Report 6767686-8 (Version None)
Quarter: 2010Q2

REPORT INFORMATION
  Report Type: 
  Country: None (occurrence: None)
  Receive Date: 20100602
  Receipt Date: 20100507
  Transmission Date: 20101027
  Serious: Yes (Other)
  Sender: FDA-Public Use
  Company Number: DK10-002

PATIENT
  Age: 68 Year
  Sex: Male

DRUGS (1)
  1. MIXED VESPID VENOM 100UG/VESPID ALK-ABELLO, A/S [Suspect]
     Indication: ALLERGY TO ARTHROPOD STING
     Dosage: 1 ML SUBCUTANEOUS
     Route: 058

REACTIONS (1)
  - PALPABLE PURPURA [None]
